FAERS Safety Report 7409392-2 (Version None)
Quarter: 2011Q2

REPORT INFORMATION
  Report Type: 
  Country: None (occurrence: None)
  Receive Date: 20110412
  Receipt Date: 20110216
  Transmission Date: 20111010
  Serious: Yes (Hospitalization, Other)
  Sender: FDA-Public Use
  Company Number: US-BAYER-201029285NA

PATIENT
  Sex: Female
  Weight: 54.422 kg

DRUGS (9)
  1. OCELLA [Suspect]
     Dosage: UNK
     Dates: start: 20070101, end: 20090401
  2. PHENERGAN HCL [Concomitant]
  3. NSAID'S [Concomitant]
  4. PERCOCET [Concomitant]
  5. PROTONIX [Concomitant]
  6. PANTOPRAZOLE [Concomitant]
  7. POTASSIUM [POTASSIUM] [Concomitant]
  8. UNKNOWN [Concomitant]
  9. LEVAQUIN [Concomitant]

REACTIONS (4)
  - NAUSEA [None]
  - VOMITING [None]
  - ABDOMINAL PAIN UPPER [None]
  - CHOLECYSTITIS CHRONIC [None]
